FAERS Safety Report 23853328 (Version 1)
Quarter: 2024Q2

REPORT INFORMATION
  Report Type: Spontaneous
  Country: GB (occurrence: GB)
  Receive Date: 20240514
  Receipt Date: 20240514
  Transmission Date: 20240715
  Serious: Yes (Other)
  Sender: FDA-Public Use
  Company Number: GB-SUN PHARMACEUTICAL INDUSTRIES LTD-2024RR-446105

PATIENT
  Age: 29 Year
  Sex: Male

DRUGS (7)
  1. FERROUS SULFATE [Suspect]
     Active Substance: FERROUS SULFATE
     Indication: Fatigue
     Dosage: UNK
     Route: 065
  2. INFLIXIMAB [Suspect]
     Active Substance: INFLIXIMAB
     Indication: Product used for unknown indication
     Dosage: 275 MG (MILLIGRAM) 6 WEEKLY, REMSIMA 1 MG BAXTER
     Route: 042
  3. INFLIXIMAB [Suspect]
     Active Substance: INFLIXIMAB
     Indication: Crohn^s disease
     Dosage: AT AN UNSPECIFIED DOSE SIX WEEKLY, REMSIMA 1 MG BAXTER
     Route: 065
     Dates: start: 20240123
  4. SODIUM CHLORIDE [Suspect]
     Active Substance: SODIUM CHLORIDE
     Indication: Product used for unknown indication
     Dosage: AT AN UNSPECIFIED DOSE 6 WEEKLY
     Route: 042
  5. SODIUM CHLORIDE [Suspect]
     Active Substance: SODIUM CHLORIDE
     Indication: Medication dilution
     Dosage: AT AN UNSPECIFIED DOSE SIX WEEKLY
     Route: 065
     Dates: start: 20240123
  6. STERILE WATER [Suspect]
     Active Substance: WATER
     Indication: Medication dilution
     Dosage: AT AN UNSPECIFIED DOSE SIX WEEKLY
     Route: 065
     Dates: start: 20240123
  7. STERILE WATER [Suspect]
     Active Substance: WATER
     Indication: Product used for unknown indication
     Dosage: AT AN UNSPECIFIED DOSE 6 WEEKLY
     Route: 042

REACTIONS (5)
  - Blood pressure increased [Recovered/Resolved]
  - Lower respiratory tract infection [Recovered/Resolved]
  - Fatigue [Not Recovered/Not Resolved]
  - Diarrhoea [Not Recovered/Not Resolved]
  - Product dose omission issue [Not Recovered/Not Resolved]
